FAERS Safety Report 7605872-5 (Version None)
Quarter: 2011Q3

REPORT INFORMATION
  Report Type: 
  Country: None (occurrence: None)
  Receive Date: 20110713
  Receipt Date: 20110708
  Transmission Date: 20111222
  Serious: Yes (Other)
  Sender: FDA-Public Use
  Company Number: BR-PFIZER INC-2011146508

PATIENT
  Age: 57 Year
  Sex: Male
  Weight: 78 kg

DRUGS (3)
  1. FLUOXETINE [Concomitant]
     Indication: RELAXATION THERAPY
     Dosage: 1 TABLET, DAILY
  2. VARENICLINE TARTRATE [Suspect]
     Dosage: 2 TABLETS, DAILY
     Route: 048
     Dates: start: 20110101, end: 20110101
  3. VARENICLINE TARTRATE [Suspect]
     Indication: TOBACCO USER
     Dosage: 1 TABLET, DAILY
     Route: 048
     Dates: start: 20110328, end: 20110404

REACTIONS (2)
  - INTERMITTENT EXPLOSIVE DISORDER [None]
  - NERVOUSNESS [None]
